FAERS Safety Report 5166799-4 (Version None)
Quarter: 2006Q4

REPORT INFORMATION
  Report Type: 
  Country: None (occurrence: None)
  Receive Date: 20061204
  Receipt Date: 20061204
  Transmission Date: 20070319
  Serious: Yes (Other)
  Sender: FDA-Public Use
  Company Number: None

PATIENT
  Age: 47 Year
  Sex: Male
  Weight: 72.5755 kg

DRUGS (1)
  1. PHENOL IN OIL [Suspect]
     Indication: HAEMORRHOIDS
     Dosage: RECTAL
     Route: 054
     Dates: start: 20030620, end: 20061002

REACTIONS (5)
  - GROIN PAIN [None]
  - PELVIC PAIN [None]
  - PROSTATIC DISORDER [None]
  - URINARY TRACT INFECTION [None]
  - UROGENITAL DISORDER [None]
